FAERS Safety Report 21946942 (Version 3)
Quarter: 2023Q1

REPORT INFORMATION
  Report Type: Spontaneous
  Country: IL (occurrence: IL)
  Receive Date: 20230202
  Receipt Date: 20230313
  Transmission Date: 20230418
  Serious: Yes (Other)
  Sender: FDA-Public Use
  Company Number: IL-BAYER-2023P007013

PATIENT
  Age: 26 Year
  Sex: Male

DRUGS (1)
  1. VITRAKVI [Suspect]
     Active Substance: LAROTRECTINIB
     Indication: Sarcoma
     Dosage: UNK
     Dates: start: 20230122, end: 20230130

REACTIONS (2)
  - Sarcoma [None]
  - Off label use [None]

NARRATIVE: CASE EVENT DATE: 20230122
